FAERS Safety Report 9250611 (Version 1)
Quarter: 2013Q2

REPORT INFORMATION
  Report Type: Spontaneous
  Country: US (occurrence: US)
  Receive Date: 20130424
  Receipt Date: 20130424
  Transmission Date: 20140414
  Serious: Yes (Other)
  Sender: FDA-Public Use
  Company Number: US-SANOFI-AVENTIS-2013SA041229

PATIENT
  Age: 80 Year
  Sex: Female

DRUGS (3)
  1. AMARYL [Suspect]
     Indication: TYPE 2 DIABETES MELLITUS
  2. LANTUS SOLOSTAR [Suspect]
     Indication: TYPE 2 DIABETES MELLITUS
     Dosage: DOSE:15 UNIT(S)
     Route: 058
  3. SOLOSTAR [Suspect]
     Indication: TYPE 2 DIABETES MELLITUS

REACTIONS (6)
  - Uterine leiomyoma [Unknown]
  - Uterine haemorrhage [Unknown]
  - Glycosylated haemoglobin increased [Unknown]
  - Chest pain [Unknown]
  - Visual acuity reduced [Unknown]
  - Malaise [Unknown]
